FAERS Safety Report 7383561-2 (Version None)
Quarter: 2011Q1

REPORT INFORMATION
  Report Type: 
  Country: None (occurrence: None)
  Receive Date: 20110325
  Receipt Date: 20110325
  Transmission Date: 20110831
  Serious: No
  Sender: FDA-Public Use
  Company Number: None

PATIENT
  Sex: Male

DRUGS (1)
  1. BUPROPION ER 150 MG [Suspect]
     Indication: DEPRESSION
     Dosage: 150MG 3 TABLETS Q.A.M PO 3+ MONTHS
     Route: 048

REACTIONS (8)
  - FEELING JITTERY [None]
  - INITIAL INSOMNIA [None]
  - CONDITION AGGRAVATED [None]
  - MIDDLE INSOMNIA [None]
  - PRODUCT SUBSTITUTION ISSUE [None]
  - NERVOUSNESS [None]
  - DEPRESSION [None]
  - NO THERAPEUTIC RESPONSE [None]
